FAERS Safety Report 5281727-9 (Version None)
Quarter: 2007Q1

REPORT INFORMATION
  Report Type: 
  Country: None (occurrence: None)
  Receive Date: 20070330
  Receipt Date: 20070327
  Transmission Date: 20070707
  Serious: Yes (Hospitalization)
  Sender: FDA-Public Use
  Company Number: US-GLAXOSMITHKLINE-A0644851A

PATIENT
  Age: 10 Year
  Sex: Male
  Weight: 28.6 kg

DRUGS (3)
  1. ADVAIR DISKUS 100/50 [Suspect]
     Indication: ASTHMA
     Dosage: 1PUFF TWICE PER DAY
     Route: 055
     Dates: end: 20070302
  2. FLONASE [Suspect]
     Indication: DRUG USE FOR UNKNOWN INDICATION
     Route: 045
     Dates: end: 20070302
  3. ZYRTEC [Concomitant]

REACTIONS (10)
  - ANOREXIA [None]
  - CONTUSION [None]
  - GROWTH RETARDATION [None]
  - HEART RATE INCREASED [None]
  - IMMUNE SYSTEM DISORDER [None]
  - MENINGITIS [None]
  - MIDDLE EAR EFFUSION [None]
  - PEAK EXPIRATORY FLOW RATE DECREASED [None]
  - PRESCRIBED OVERDOSE [None]
  - SINUSITIS [None]
